FAERS Safety Report 25883912 (Version 1)
Quarter: 2025Q4

REPORT INFORMATION
  Report Type: Spontaneous
  Country: CN (occurrence: CN)
  Receive Date: 20251006
  Receipt Date: 20251006
  Transmission Date: 20260117
  Serious: Yes (Death)
  Sender: NOVARTIS
  Company Number: CN-002147023-NVSC2025CN152414

PATIENT
  Age: 26 Year
  Sex: Male

DRUGS (1)
  1. IMATINIB [Suspect]
     Active Substance: IMATINIB
     Indication: Eosinophilia
     Dosage: UNK
     Route: 065

REACTIONS (7)
  - Disease progression [Fatal]
  - Cardiac failure [Fatal]
  - Sepsis [Fatal]
  - Embolism [Fatal]
  - Platelet count decreased [Fatal]
  - Gastrointestinal disorder [Unknown]
  - Off label use [Unknown]
